FAERS Safety Report 14940109 (Version 2)
Quarter: 2018Q3

REPORT INFORMATION
  Report Type: Spontaneous
  Country: US (occurrence: US)
  Receive Date: 20180525
  Receipt Date: 20180710
  Transmission Date: 20181010
  Serious: Yes (Hospitalization, Other)
  Sender: FDA-Public Use
  Company Number: US-ELI_LILLY_AND_COMPANY-US201805008005

PATIENT
  Sex: Female

DRUGS (4)
  1. VIOXX [Suspect]
     Active Substance: ROFECOXIB
     Indication: PRODUCT USED FOR UNKNOWN INDICATION
     Dosage: UNK, UNKNOWN
     Route: 065
  2. VANCOMYCIN [Suspect]
     Active Substance: VANCOMYCIN
     Indication: PRODUCT USED FOR UNKNOWN INDICATION
     Dosage: UNK, UNKNOWN
     Route: 065
  3. HUMULIN R [Suspect]
     Active Substance: INSULIN HUMAN
     Indication: PRODUCT USED FOR UNKNOWN INDICATION
     Dosage: UNK, UNKNOWN
     Route: 058
  4. HUMULIN N [Suspect]
     Active Substance: INSULIN HUMAN
     Indication: PRODUCT USED FOR UNKNOWN INDICATION
     Dosage: UNK, UNKNOWN
     Route: 058

REACTIONS (25)
  - Foot fracture [Unknown]
  - Dry eye [Unknown]
  - Dysphonia [Unknown]
  - Neuropathic arthropathy [Recovering/Resolving]
  - Peripheral swelling [Unknown]
  - Retinal detachment [Unknown]
  - Road traffic accident [Unknown]
  - Hypoacusis [Not Recovered/Not Resolved]
  - Pruritus [Not Recovered/Not Resolved]
  - Infection [Unknown]
  - Wheezing [Unknown]
  - Macular degeneration [Not Recovered/Not Resolved]
  - Abscess limb [Recovered/Resolved]
  - Blister [Unknown]
  - Retinopathy [Unknown]
  - Hypertonic bladder [Unknown]
  - Blister rupture [Unknown]
  - Memory impairment [Not Recovered/Not Resolved]
  - Localised infection [Unknown]
  - Arthritis [Recovering/Resolving]
  - Trichoglossia [Unknown]
  - Blood cholesterol increased [Not Recovered/Not Resolved]
  - Drug hypersensitivity [Unknown]
  - Neuropathy peripheral [Unknown]
  - Astigmatism [Unknown]

NARRATIVE: CASE EVENT DATE: 1989
